FAERS Safety Report 9530029 (Version 1)
Quarter: 2013Q2

REPORT INFORMATION
  Report Type: Spontaneous
  Country: US (occurrence: None)
  Receive Date: 20130402
  Receipt Date: 20130402
  Transmission Date: 20140414
  Serious: Yes (Hospitalization)
  Sender: FDA-Public Use
  Company Number: RB-48286-2012

PATIENT
  Sex: Female

DRUGS (4)
  1. SUBOXONE 8 MG [Suspect]
     Indication: DRUG DEPENDENCE
     Route: 064
     Dates: start: 201208, end: 20121101
  2. OPIOIDS [Suspect]
     Indication: DRUG DEPENDENCE
     Route: 064
  3. NICOTINE [Suspect]
     Indication: NICOTINE DEPENDENCE
     Dosage: ONE PACK PER DAY TRANSPLACENTAL
     Dates: end: 20121101
  4. ALBUTEROL [Suspect]
     Indication: ASTHMA
     Route: 064
     Dates: end: 20121101

REACTIONS (2)
  - Drug withdrawal syndrome neonatal [None]
  - Foetal exposure during pregnancy [None]
